FAERS Safety Report 4277880-6 (Version None)
Quarter: 2004Q1

REPORT INFORMATION
  Report Type: 
  Country: None (occurrence: None)
  Receive Date: 20040121
  Receipt Date: 20040108
  Transmission Date: 20041129
  Serious: Yes (Other)
  Sender: FDA-Public Use
  Company Number: DE-SHR-03-17611

PATIENT
  Age: 41 Year
  Sex: Female
  Weight: 75 kg

DRUGS (4)
  1. BETAFERON (INTERFERON BETA-1B) INJECTION [Suspect]
     Indication: MULTIPLE SCLEROSIS
     Dosage: 1 AMP, EVERY 2D, SUBCUTANEOUS
     Route: 058
     Dates: start: 19990823
  2. ORAL CONTRACEPTIVE NOS [Concomitant]
  3. HYDROCHLOROTHIAZID [Concomitant]
  4. DICLOFENAC SODIUM [Concomitant]

REACTIONS (2)
  - BASEDOW'S DISEASE [None]
  - CONDITION AGGRAVATED [None]
